FAERS Safety Report 7584030-7 (Version None)
Quarter: 2011Q2

REPORT INFORMATION
  Report Type: 
  Country: None (occurrence: None)
  Receive Date: 20110630
  Receipt Date: 20110621
  Transmission Date: 20111010
  Serious: Yes (Death)
  Sender: FDA-Public Use
  Company Number: JP-JNJFOC-20110610693

PATIENT
  Age: 70 Year
  Sex: Female

DRUGS (6)
  1. METHOTREXATE [Suspect]
     Indication: PRODUCT USED FOR UNKNOWN INDICATION
     Route: 048
  2. REMICADE [Suspect]
     Indication: RHEUMATOID ARTHRITIS
     Route: 042
  3. STEROIDS NOS [Concomitant]
     Route: 065
  4. REMICADE [Suspect]
     Route: 042
     Dates: end: 20110109
  5. FOSAMAC [Concomitant]
     Route: 048
  6. FOLIC ACID [Concomitant]
     Route: 065

REACTIONS (2)
  - RESPIRATORY DISTRESS [None]
  - KLEBSIELLA TEST POSITIVE [None]
